FAERS Safety Report 25604418 (Version 1)
Quarter: 2025Q3

REPORT INFORMATION
  Report Type: Spontaneous
  Country: EU (occurrence: EU)
  Receive Date: 20250725
  Receipt Date: 20250725
  Transmission Date: 20251021
  Serious: Yes (Hospitalization)
  Sender: ORPHALAN
  Company Number: EU-ORPHALAN-FR-ORP-25-00111

PATIENT

DRUGS (1)
  1. TRIENTINE TETRAHYDROCHLORIDE [Suspect]
     Active Substance: TRIENTINE TETRAHYDROCHLORIDE
     Indication: Hepato-lenticular degeneration
     Dosage: 300 MILLIGRAM, BID
     Route: 065
     Dates: start: 20250314

REACTIONS (2)
  - Anorexia nervosa [Unknown]
  - Nausea [Not Recovered/Not Resolved]
